FAERS Safety Report 10215836 (Version 2)
Quarter: 2014Q2

REPORT INFORMATION
  Report Type: Not Available
  Country: US (occurrence: US)
  Receive Date: 20140604
  Receipt Date: 20140604
  Transmission Date: 20141212
  Serious: No
  Sender: FDA-Public Use
  Company Number: US-LUPIN PHARMACEUTICALS INC.-E2B_00001934

PATIENT
  Age: 71 Year
  Sex: Female
  Weight: 53.12 kg

DRUGS (7)
  1. ETHAMBUTOL HYDROCHLORIDE TABLETS USP 400MG [Suspect]
     Indication: TUBERCULOSIS
     Dates: start: 201308
  2. CLARITHROMYCIN [Suspect]
     Indication: TUBERCULOSIS
     Dates: start: 201308
  3. RIFAMPIN [Suspect]
     Indication: TUBERCULOSIS
     Dates: start: 201308
  4. METHOTREXATE [Concomitant]
     Indication: RHEUMATOID ARTHRITIS
  5. PREDNISONE [Concomitant]
     Indication: RHEUMATOID ARTHRITIS
  6. FOLIC ACID [Concomitant]
     Indication: PRODUCT USED FOR UNKNOWN INDICATION
  7. VITAMIN D [Concomitant]
     Indication: PRODUCT USED FOR UNKNOWN INDICATION

REACTIONS (3)
  - Weight decreased [Not Recovered/Not Resolved]
  - Rheumatoid factor increased [Not Recovered/Not Resolved]
  - Arthralgia [Not Recovered/Not Resolved]
